FAERS Safety Report 10950131 (Version 1)
Quarter: 2015Q1

REPORT INFORMATION
  Report Type: Report from Study
  Country: BR (occurrence: BR)
  Receive Date: 20150324
  Receipt Date: 20150324
  Transmission Date: 20150721
  Serious: Yes (Other)
  Sender: FDA-Public Use
  Company Number: ALCN2015BR001783

PATIENT
  Sex: Male
  Weight: 70 kg

DRUGS (3)
  1. AZORGA [Suspect]
     Active Substance: BRINZOLAMIDE\TIMOLOL MALEATE
     Indication: INTRAOCULAR PRESSURE INCREASED
     Dosage: 1 GTT, BID
     Route: 047
     Dates: start: 201407
  2. ANTIGLAUCOMA PREPARATIONS AND MIOTICS [Concomitant]
     Indication: INTRAOCULAR PRESSURE INCREASED
     Dosage: 1 DF, PRN
     Route: 047
  3. DUOTRAV BAC-FREE [Suspect]
     Active Substance: TIMOLOL\TRAVOPROST
     Indication: INTRAOCULAR PRESSURE INCREASED
     Dosage: 1 GTT, QD
     Route: 047
     Dates: start: 201407

REACTIONS (1)
  - Blindness unilateral [Not Recovered/Not Resolved]
